FAERS Safety Report 23805335 (Version 1)
Quarter: 2024Q2

REPORT INFORMATION
  Report Type: Spontaneous
  Country: IT (occurrence: IT)
  Receive Date: 20240502
  Receipt Date: 20240502
  Transmission Date: 20240715
  Serious: Yes (Other)
  Sender: FDA-Public Use
  Company Number: IT-CELLTRION INC.-2024IT009009

PATIENT

DRUGS (3)
  1. RITUXIMAB [Suspect]
     Active Substance: RITUXIMAB
     Indication: Mantle cell lymphoma
     Dosage: ADDITIONAL INFORMATION ON DRUG (FREE TEXT): R-BAC
  2. CYTARABINE [Suspect]
     Active Substance: CYTARABINE
     Indication: Mantle cell lymphoma
     Dosage: ADDITIONAL INFORMATION ON DRUG (FREE TEXT): R-BAC
  3. BENDAMUSTINE [Suspect]
     Active Substance: BENDAMUSTINE
     Indication: Mantle cell lymphoma
     Dosage: ADDITIONAL INFORMATION ON DRUG (FREE TEXT): R-BAC

REACTIONS (5)
  - COVID-19 [Unknown]
  - COVID-19 pneumonia [Unknown]
  - Respiratory failure [Unknown]
  - Off label use [Unknown]
  - Intentional product use issue [Unknown]
